FAERS Safety Report 8756724 (Version 2)
Quarter: 2012Q4

REPORT INFORMATION
  Report Type: 
  Country: US (occurrence: US)
  Receive Date: 20120828
  Receipt Date: 20121217
  Transmission Date: 20130627
  Serious: Yes (Other)
  Sender: FDA-Public Use
  Company Number: US-BAYER-2012-086612

PATIENT
  Age: 35 Year
  Sex: Female
  Weight: 53 kg

DRUGS (6)
  1. BEYAZ [Suspect]
     Dosage: UNK
     Dates: start: 20111016, end: 20111228
  2. ANTIBIOTICS [Concomitant]
     Dosage: Once daily for 10 days
     Dates: start: 201111
  3. FLORAJEN [Concomitant]
     Dosage: UNK, Once daily
  4. GARDEN OF LIFE PRIMAL DEFENSE - PROBIOITIC [Concomitant]
     Dosage: 2 pills daily
     Dates: start: 201110
  5. NSAID^S [Concomitant]
  6. ASCORBIC ACID [Concomitant]

REACTIONS (7)
  - Gallbladder disorder [None]
  - Injury [None]
  - Chest pain [None]
  - Back pain [None]
  - Emotional distress [None]
  - Anxiety [None]
  - Psychological trauma [None]
